FAERS Safety Report 19841480 (Version 2)
Quarter: 2023Q1

REPORT INFORMATION
  Report Type: Spontaneous
  Country: US (occurrence: US)
  Receive Date: 20210915
  Receipt Date: 20230123
  Transmission Date: 20230417
  Serious: Yes (Hospitalization, Other)
  Sender: FDA-Public Use
  Company Number: US-LUPIN PHARMACEUTICALS INC.-2021-17450

PATIENT
  Age: 72 Year
  Sex: Male

DRUGS (3)
  1. TESTOSTERONE [Suspect]
     Active Substance: TESTOSTERONE
     Indication: Benign prostatic hyperplasia
     Dosage: UNK
     Route: 065
  2. TESTOSTERONE [Suspect]
     Active Substance: TESTOSTERONE
     Indication: Libido decreased
  3. TESTOSTERONE [Suspect]
     Active Substance: TESTOSTERONE
     Indication: Fatigue

REACTIONS (3)
  - Polycythaemia [Recovered/Resolved]
  - Mesenteric vein thrombosis [Recovered/Resolved]
  - Off label use [Unknown]
